FAERS Safety Report 9687072 (Version 3)
Quarter: 2014Q2

REPORT INFORMATION
  Report Type: Spontaneous
  Country: US (occurrence: US)
  Receive Date: 20131113
  Receipt Date: 20140419
  Transmission Date: 20141212
  Serious: Yes (Hospitalization)
  Sender: FDA-Public Use
  Company Number: US-B.I. PHARMACEUTICALS,INC./RIDGEFIELD-2012-BP-03227BP

PATIENT
  Sex: Female
  Weight: 76.66 kg

DRUGS (16)
  1. PRADAXA [Suspect]
     Indication: ATRIAL FIBRILLATION
     Dosage: 300 MG
     Route: 065
     Dates: start: 20110302, end: 20111227
  2. PRADAXA [Suspect]
     Indication: ANTICOAGULANT THERAPY
  3. SINGULAIR [Concomitant]
     Route: 065
     Dates: start: 201004
  4. SPIRIVA [Concomitant]
     Route: 065
     Dates: start: 201009
  5. TORSEMIDE [Concomitant]
     Route: 065
     Dates: start: 201010
  6. ALLOPURINOL [Concomitant]
     Route: 065
  7. AMITIZA [Concomitant]
     Route: 065
  8. NASONEX [Concomitant]
     Route: 065
  9. FLOVENT HFA [Concomitant]
     Route: 065
  10. OMEPRAZOLE [Concomitant]
     Route: 065
     Dates: start: 201005
  11. PROAIR HFA [Concomitant]
     Route: 065
  12. COREG [Concomitant]
     Route: 065
     Dates: start: 201006
  13. DICLOFENAC [Concomitant]
     Route: 065
  14. HUMULIN [Concomitant]
     Route: 065
  15. PREDNISONE [Concomitant]
     Route: 065
  16. NYSTATIN [Concomitant]
     Route: 065

REACTIONS (1)
  - Gastrointestinal haemorrhage [Recovered/Resolved]
